FAERS Safety Report 15213113 (Version 3)
Quarter: 2018Q3

REPORT INFORMATION
  Report Type: Spontaneous
  Country: US (occurrence: US)
  Receive Date: 20180730
  Receipt Date: 20180912
  Transmission Date: 20181010
  Serious: No
  Sender: FDA-Public Use
  Company Number: US-PFIZER INC-2018299674

PATIENT
  Age: 69 Year
  Sex: Male
  Weight: 79.38 kg

DRUGS (2)
  1. LATANOPROST. [Suspect]
     Active Substance: LATANOPROST
     Indication: GLAUCOMA
     Dosage: 2 GTT, DAILY (1 DROP PER EYE IN THE EVENING)
     Route: 047
     Dates: start: 2018
  2. LATANOPROST. [Suspect]
     Active Substance: LATANOPROST
     Dosage: UNK

REACTIONS (3)
  - Eye irritation [Not Recovered/Not Resolved]
  - Incorrect dose administered [Unknown]
  - Product dropper issue [Unknown]

NARRATIVE: CASE EVENT DATE: 2018
